FAERS Safety Report 6203727-4 (Version None)
Quarter: 2009Q2

REPORT INFORMATION
  Report Type: 
  Country: None (occurrence: None)
  Receive Date: 20090527
  Receipt Date: 20090520
  Transmission Date: 20091009
  Serious: Yes (Other)
  Sender: FDA-Public Use
  Company Number: US-ABBOTT-09P-163-0574729-00

PATIENT
  Age: 42 Year
  Sex: Male

DRUGS (2)
  1. HUMIRA [Suspect]
     Indication: PSORIASIS
     Route: 058
     Dates: start: 20080101, end: 20090413
  2. ATENOLOL [Concomitant]
     Indication: HYPERTENSION

REACTIONS (2)
  - DEMYELINATION [None]
  - OPTIC NEURITIS [None]
